FAERS Safety Report 19148138 (Version 1)
Quarter: 2021Q2

REPORT INFORMATION
  Report Type: Spontaneous
  Country: US (occurrence: US)
  Receive Date: 20210416
  Receipt Date: 20210416
  Transmission Date: 20210717
  Serious: Yes (Other)
  Sender: FDA-Public Use
  Company Number: US-ABBVIE-21K-163-3861398-00

PATIENT
  Age: 64 Year
  Sex: Female

DRUGS (1)
  1. SYNTHROID [Suspect]
     Active Substance: LEVOTHYROXINE SODIUM
     Indication: PRODUCT USED FOR UNKNOWN INDICATION
     Route: 048

REACTIONS (5)
  - Thyroxine abnormal [Unknown]
  - Thyroidectomy [Unknown]
  - Parathyroid disorder [Unknown]
  - Parathyroid tumour [Unknown]
  - Alopecia [Unknown]

NARRATIVE: CASE EVENT DATE: 2021
